FAERS Safety Report 17013074 (Version 1)
Quarter: 2019Q4

REPORT INFORMATION
  Report Type: Spontaneous
  Country: US (occurrence: US)
  Receive Date: 20191001
  Receipt Date: 20191001
  Transmission Date: 20200122
  Serious: Yes (Hospitalization)
  Sender: FDA-Public Use
  Company Number: None

PATIENT
  Age: 52 Year
  Sex: Female

DRUGS (3)
  1. BRILINTA [Concomitant]
     Active Substance: TICAGRELOR
  2. EZETIMIBE. [Concomitant]
     Active Substance: EZETIMIBE
  3. REPATHA [Suspect]
     Active Substance: EVOLOCUMAB
     Indication: PRODUCT USED FOR UNKNOWN INDICATION
     Route: 058
     Dates: start: 20180914

REACTIONS (2)
  - Therapy cessation [None]
  - Presyncope [None]

NARRATIVE: CASE EVENT DATE: 20190924
